FAERS Safety Report 20377890 (Version 1)
Quarter: 2022Q1

REPORT INFORMATION
  Report Type: Spontaneous
  Country: SE (occurrence: SE)
  Receive Date: 20220126
  Receipt Date: 20220126
  Transmission Date: 20220424
  Serious: Yes (Other)
  Sender: FDA-Public Use
  Company Number: SE-NOVARTISPH-NVSC2022SE011804

PATIENT
  Age: 47 Year
  Sex: Male

DRUGS (1)
  1. METOPROLOL [Suspect]
     Active Substance: METOPROLOL
     Indication: Microscopic polyangiitis
     Dosage: UNK
     Route: 065
     Dates: end: 20211108

REACTIONS (2)
  - Polyneuropathy [Unknown]
  - Toxicity to various agents [Unknown]

NARRATIVE: CASE EVENT DATE: 20211021
